FAERS Safety Report 12338058 (Version 1)
Quarter: 2016Q2

REPORT INFORMATION
  Report Type: Spontaneous
  Country: CA (occurrence: CA)
  Receive Date: 20160505
  Receipt Date: 20160505
  Transmission Date: 20160815
  Serious: Yes (Other)
  Sender: FDA-Public Use
  Company Number: CA-JNJFOC-20160503959

PATIENT
  Age: 65 Year
  Sex: Male
  Weight: 131.97 kg

DRUGS (4)
  1. AMILORIDE HYDROCHLORIDE. [Concomitant]
     Active Substance: AMILORIDE HYDROCHLORIDE
     Route: 065
  2. XARELTO [Suspect]
     Active Substance: RIVAROXABAN
     Indication: EMBOLISM VENOUS
     Route: 048
  3. HYDROCHLOROTHIAZIDE. [Concomitant]
     Active Substance: HYDROCHLOROTHIAZIDE
     Route: 065
  4. ATENOLOL BP [Concomitant]
     Active Substance: ATENOLOL
     Route: 065

REACTIONS (4)
  - Pruritus [Unknown]
  - Sleep disorder [Unknown]
  - Acrochordon [Unknown]
  - Rash maculo-papular [Unknown]
